FAERS Safety Report 16712226 (Version 2)
Quarter: 2019Q3

REPORT INFORMATION
  Report Type: Spontaneous
  Country: FR (occurrence: FR)
  Receive Date: 20190816
  Receipt Date: 20190906
  Transmission Date: 20191004
  Serious: Yes (Other)
  Sender: FDA-Public Use
  Company Number: PHHY2019FR187806

PATIENT
  Age: 20 Year
  Sex: Male

DRUGS (13)
  1. GENTAMICIN. [Concomitant]
     Active Substance: GENTAMICIN
     Indication: ANTIBIOTIC THERAPY
  2. CEFEPIME [Concomitant]
     Active Substance: CEFEPIME HYDROCHLORIDE
     Indication: KLEBSIELLA INFECTION
  3. GENTAMICIN. [Concomitant]
     Active Substance: GENTAMICIN
     Indication: KLEBSIELLA INFECTION
  4. CEFEPIME [Concomitant]
     Active Substance: CEFEPIME HYDROCHLORIDE
     Indication: EVIDENCE BASED TREATMENT
     Dosage: 100 MG/KG, QD (MAINTENANCE DOSE; FOR A TOTAL OF 7 DAYS)
     Route: 042
  5. CEFEPIME [Concomitant]
     Active Substance: CEFEPIME HYDROCHLORIDE
     Indication: ANTIBIOTIC THERAPY
  6. VANCOMYCIN [Concomitant]
     Active Substance: VANCOMYCIN
     Indication: KLEBSIELLA INFECTION
  7. LEVOFLOXACIN. [Suspect]
     Active Substance: LEVOFLOXACIN
     Indication: KLEBSIELLA INFECTION
     Dosage: UNK (PRESCRIBED FOR 6 WEEKS)
     Route: 048
  8. GENTAMICIN. [Concomitant]
     Active Substance: GENTAMICIN
     Indication: EVIDENCE BASED TREATMENT
     Dosage: UNK
     Route: 065
  9. CEFEPIME [Concomitant]
     Active Substance: CEFEPIME HYDROCHLORIDE
     Indication: PROTEUS INFECTION
     Dosage: 2 G, UNK (LOADING DOSE)
     Route: 042
  10. LEVOFLOXACIN. [Suspect]
     Active Substance: LEVOFLOXACIN
     Indication: PROTEUS INFECTION
     Dosage: UNK(250/500/750 MG CONCENTRATION)
     Route: 065
  11. VANCOMYCIN [Concomitant]
     Active Substance: VANCOMYCIN
     Indication: PROTEUS INFECTION
     Dosage: 15 MG/KG, UNK (LOADING DOSE)
     Route: 042
  12. VANCOMYCIN [Concomitant]
     Active Substance: VANCOMYCIN
     Indication: EVIDENCE BASED TREATMENT
     Dosage: 30 MG/KG, QD(MAINTENANCE DOSE; FOR A TOTAL OF 7 DAYS)
     Route: 042
  13. GENTAMICIN. [Concomitant]
     Active Substance: GENTAMICIN
     Indication: PROTEUS INFECTION
     Dosage: 5 MG/KG, QD(PRESCRIBED FOR 7 DAYS)
     Route: 042

REACTIONS (3)
  - Bacillus infection [Unknown]
  - Product use in unapproved indication [Unknown]
  - Treatment failure [Unknown]
